FAERS Safety Report 8130387-8 (Version None)
Quarter: 2012Q1

REPORT INFORMATION
  Report Type: 
  Country: None (occurrence: None)
  Receive Date: 20120210
  Receipt Date: 20120130
  Transmission Date: 20120608
  Serious: Yes (Other)
  Sender: FDA-Public Use
  Company Number: CHPA2012US002425

PATIENT
  Age: 76 Year
  Sex: Female

DRUGS (2)
  1. GAS-X PREVENTION [Suspect]
     Indication: FLATULENCE
     Dosage: 1 DF, ONCE A WEEK
     Route: 048
     Dates: end: 20120101
  2. NEXIUM [Concomitant]
     Indication: GASTROOESOPHAGEAL REFLUX DISEASE
     Dosage: UNK
     Route: 048

REACTIONS (6)
  - LOSS OF CONSCIOUSNESS [None]
  - HOT FLUSH [None]
  - CHEST PAIN [None]
  - NAUSEA [None]
  - COLD SWEAT [None]
  - BRONCHITIS [None]
